FAERS Safety Report 4931526-X (Version None)
Quarter: 2006Q1

REPORT INFORMATION
  Report Type: 
  Country: None (occurrence: None)
  Receive Date: 20060303
  Receipt Date: 20060222
  Transmission Date: 20060701
  Serious: Yes (Other)
  Sender: FDA-Public Use
  Company Number: PHRM2006FR00883

PATIENT
  Age: 49 Year
  Sex: Female

DRUGS (1)
  1. VOLTARENE L.P. [Suspect]
     Indication: NECK PAIN
     Dosage: UNK, PRN
     Route: 048
     Dates: end: 20060117

REACTIONS (2)
  - EAR DISCOMFORT [None]
  - HYPOACUSIS [None]
